FAERS Safety Report 13288874 (Version 1)
Quarter: 2017Q1

REPORT INFORMATION
  Report Type: Spontaneous
  Country: US (occurrence: US)
  Receive Date: 20170302
  Receipt Date: 20170302
  Transmission Date: 20170428
  Serious: Yes (Hospitalization)
  Sender: FDA-Public Use
  Company Number: US-ASTRAZENECA-2017SE22492

PATIENT
  Sex: Male
  Weight: 87.2 kg

DRUGS (5)
  1. LIPITOR [Concomitant]
     Active Substance: ATORVASTATIN CALCIUM
     Indication: HYPERLIPIDAEMIA
     Route: 048
  2. ASPIRIN. [Concomitant]
     Active Substance: ASPIRIN
     Route: 048
  3. PRILOSEC [Suspect]
     Active Substance: OMEPRAZOLE MAGNESIUM
     Route: 048
  4. TOUJEO INSULIN [Concomitant]
     Indication: DIABETES MELLITUS
     Dosage: 15 UNITS, AT NIGHT
     Route: 058
  5. XIGDUO XR [Suspect]
     Active Substance: DAPAGLIFLOZIN PROPANEDIOL\METFORMIN HYDROCHLORIDE
     Indication: TYPE 2 DIABETES MELLITUS
     Dosage: 5/1000MG, 2 TABLETS EVERY MORNING
     Route: 048
     Dates: start: 20170214, end: 20170221

REACTIONS (6)
  - Urine output decreased [Recovering/Resolving]
  - Hypertension [Unknown]
  - Hepatitis acute [Recovering/Resolving]
  - Hyperlipidaemia [Unknown]
  - Liver injury [Recovering/Resolving]
  - Diabetes mellitus inadequate control [Unknown]
